FAERS Safety Report 5205949-8 (Version None)
Quarter: 2007Q1

REPORT INFORMATION
  Report Type: 
  Country: None (occurrence: None)
  Receive Date: 20070111
  Receipt Date: 20070108
  Transmission Date: 20070707
  Serious: Yes (Hospitalization)
  Sender: FDA-Public Use
  Company Number: FR-GLAXOSMITHKLINE-B0453356A

PATIENT
  Age: 50 Year
  Sex: Female
  Weight: 38 kg

DRUGS (11)
  1. VENTOLIN [Suspect]
     Indication: ASTHMA
  2. PAROXETINE HCL [Suspect]
  3. ZOFRAN [Suspect]
  4. VFEND [Suspect]
     Indication: ASPERGILLOSIS
     Dosage: 200MG PER DAY
     Route: 048
     Dates: start: 20060524
  5. SYMBICORT [Suspect]
     Dosage: 2PUFF PER DAY
     Route: 055
  6. CANCIDAS [Suspect]
     Indication: ASPERGILLOSIS
     Dosage: 50MG PER DAY
     Route: 042
     Dates: start: 20060612
  7. DURAGESIC-100 [Suspect]
  8. DESLORATADINE [Suspect]
  9. SINGULAIR [Suspect]
  10. LYRICA [Suspect]
  11. ZOLPIDEM TARTRATE [Suspect]

REACTIONS (3)
  - CHEST PAIN [None]
  - GENERAL PHYSICAL HEALTH DETERIORATION [None]
  - HYPOKALAEMIA [None]
